FAERS Safety Report 17694596 (Version 1)
Quarter: 2020Q2

REPORT INFORMATION
  Report Type: Report from Study
  Country: AR (occurrence: AR)
  Receive Date: 20200422
  Receipt Date: 20200422
  Transmission Date: 20200714
  Serious: Yes (Life-Threatening)
  Sender: FDA-Public Use
  Company Number: PHHO2015AR011481

PATIENT
  Age: 47 Year
  Sex: Female
  Weight: 88.9 kg

DRUGS (7)
  1. LCI699 [Suspect]
     Active Substance: OSILODROSTAT
     Dosage: 5 MG, BID
     Route: 048
     Dates: start: 20150728
  2. HYDROCORTISONE. [Concomitant]
     Active Substance: HYDROCORTISONE
     Indication: PRODUCT USED FOR UNKNOWN INDICATION
     Route: 042
  3. LCI699 [Suspect]
     Active Substance: OSILODROSTAT
     Dosage: 10 MG, BID
     Route: 048
     Dates: start: 20150610, end: 20150706
  4. NO TREATMENT RECEIVED [Suspect]
     Active Substance: UNSPECIFIED INGREDIENT
     Indication: PITUITARY-DEPENDENT CUSHING^S SYNDROME
     Dosage: NO TREATMENT
     Route: 065
  5. LCI699 [Suspect]
     Active Substance: OSILODROSTAT
     Dosage: 5 MG, BID
     Route: 048
     Dates: start: 20150520, end: 20150609
  6. LCI699 [Suspect]
     Active Substance: OSILODROSTAT
     Indication: PITUITARY-DEPENDENT CUSHING^S SYNDROME
     Dosage: 1 MG, BID
     Route: 048
     Dates: start: 20150414, end: 20150427
  7. LCI699 [Suspect]
     Active Substance: OSILODROSTAT
     Dosage: 2 MG, BID
     Route: 048
     Dates: start: 20150428, end: 20150519

REACTIONS (1)
  - Adrenal insufficiency [Recovered/Resolved]

NARRATIVE: CASE EVENT DATE: 20150703
